FAERS Safety Report 23043618 (Version 1)
Quarter: 2023Q4

REPORT INFORMATION
  Report Type: Spontaneous
  Country: US (occurrence: US)
  Receive Date: 20231009
  Receipt Date: 20231009
  Transmission Date: 20240110
  Serious: No
  Sender: FDA-Public Use
  Company Number: US-BoehringerIngelheim-2023-BI-265082

PATIENT
  Sex: Female

DRUGS (19)
  1. MOBIC [Suspect]
     Active Substance: MELOXICAM
     Indication: Product used for unknown indication
     Dosage: 15 MG
  2. EMGALITY PEN 120  MG/ML PEN INJCTR [Concomitant]
     Indication: Product used for unknown indication
  3. ZYRTEC 10mg capsule [Concomitant]
     Indication: Product used for unknown indication
  4. HYDROXYCHLOROQUINE SULFATE [Concomitant]
     Active Substance: HYDROXYCHLOROQUINE SULFATE
     Indication: Product used for unknown indication
  5. SULFASALAZINE 500 MG TABLET [Concomitant]
     Indication: Product used for unknown indication
  6. BETAMETHASONE DIPROPIONATE [Concomitant]
     Active Substance: BETAMETHASONE DIPROPIONATE
     Indication: Product used for unknown indication
  7. LATANOPROST 0.005 % DROPS [Concomitant]
     Indication: Product used for unknown indication
  8. METHYLPHENIDATE ER 20 MG TABLET ER [Concomitant]
     Indication: Product used for unknown indication
  9. DICLOFENAC SODIUM 1 % GEL (GRAM) [Concomitant]
     Indication: Product used for unknown indication
  10. AMLODIPINE BESYLATE [Concomitant]
     Active Substance: AMLODIPINE BESYLATE
     Indication: Product used for unknown indication
     Dosage: 5MG
  11. POTASSIUM 100mg tablet [Concomitant]
     Indication: Product used for unknown indication
  12. GABAPENTIN [Concomitant]
     Active Substance: GABAPENTIN
     Indication: Product used for unknown indication
  13. SUMATRIPTAN SUCCINATE 100 MG  TABLET [Concomitant]
     Indication: Product used for unknown indication
  14. TRAMADOL HCL 50 MG TABLET [Concomitant]
     Indication: Product used for unknown indication
  15. TOPIRAMATE 50 MG TABLET [Concomitant]
     Indication: Product used for unknown indication
  16. ALBUTEROL SULFATE [Concomitant]
     Active Substance: ALBUTEROL SULFATE
     Indication: Product used for unknown indication
  17. ONDANSETRON HCL 4 MG TABLET [Concomitant]
     Indication: Product used for unknown indication
  18. PREDNISONE  10 MG TAB DS PK [Concomitant]
     Indication: Product used for unknown indication
  19. CLONAZEPAM [Concomitant]
     Active Substance: CLONAZEPAM
     Indication: Product used for unknown indication

REACTIONS (4)
  - Feeling abnormal [Unknown]
  - Abscess [Unknown]
  - Condition aggravated [Not Recovered/Not Resolved]
  - Stress [Unknown]
